FAERS Safety Report 14052915 (Version 2)
Quarter: 2017Q4

REPORT INFORMATION
  Report Type: Spontaneous
  Country: US (occurrence: US)
  Receive Date: 20171006
  Receipt Date: 20171128
  Transmission Date: 20180321
  Serious: No
  Sender: FDA-Public Use
  Company Number: US-JNJFOC-20170926892

PATIENT
  Age: 82 Year
  Sex: Female
  Weight: 52.62 kg

DRUGS (2)
  1. ZYRTEC [Suspect]
     Active Substance: CETIRIZINE HYDROCHLORIDE
     Indication: PRURITUS
     Dosage: 1 TABLET DAILY, FOR 10 DAYS
     Route: 048
     Dates: start: 20170902, end: 20170929
  2. ZYRTEC [Suspect]
     Active Substance: CETIRIZINE HYDROCHLORIDE
     Indication: ARTHROPOD STING
     Dosage: 1 TABLET DAILY, FOR 10 DAYS
     Route: 048
     Dates: start: 20170902, end: 20170929

REACTIONS (4)
  - Product label issue [Unknown]
  - Blood urine present [Recovered/Resolved]
  - Product use in unapproved indication [Recovered/Resolved]
  - Fatigue [Recovered/Resolved]

NARRATIVE: CASE EVENT DATE: 201709
